FAERS Safety Report 23813442 (Version 1)
Quarter: 2024Q2

REPORT INFORMATION
  Report Type: Spontaneous
  Country: US (occurrence: US)
  Receive Date: 20240503
  Receipt Date: 20240503
  Transmission Date: 20240716
  Serious: Yes (Hospitalization, Disabling)
  Sender: FDA-Public Use
  Company Number: US-MYLANLABS-2024M1038739

PATIENT
  Age: 7 Year
  Sex: Male

DRUGS (6)
  1. DOXYCYCLINE [Suspect]
     Active Substance: DOXYCYCLINE
     Indication: Lyme disease
     Dosage: UNK
     Route: 065
  2. ACETAZOLAMIDE [Suspect]
     Active Substance: ACETAZOLAMIDE
     Indication: Intracranial pressure increased
     Dosage: 1000 MILLIGRAM, BID
     Route: 065
  3. METHYLPREDNISOLONE [Suspect]
     Active Substance: METHYLPREDNISOLONE
     Indication: Intracranial pressure increased
     Dosage: 100 MILLIGRAM, Q6H
     Route: 042
  4. AMOXICILLIN [Concomitant]
     Active Substance: AMOXICILLIN
     Indication: Lyme disease
     Dosage: UNK
     Route: 065
  5. CEFTRIAXONE [Concomitant]
     Active Substance: CEFTRIAXONE\CEFTRIAXONE SODIUM
     Indication: Evidence based treatment
     Dosage: 1 GRAM
     Route: 042
  6. CEFTRIAXONE [Concomitant]
     Active Substance: CEFTRIAXONE\CEFTRIAXONE SODIUM
     Dosage: 100 MILLIGRAM/KILOGRAM, QD
     Route: 042

REACTIONS (14)
  - Blindness [Not Recovered/Not Resolved]
  - Papilloedema [Unknown]
  - Optic neuritis [Unknown]
  - Intracranial pressure increased [Unknown]
  - Cranial nerve paralysis [Unknown]
  - Vision blurred [Not Recovered/Not Resolved]
  - Colour blindness [Not Recovered/Not Resolved]
  - Condition aggravated [Unknown]
  - Neurological symptom [Unknown]
  - Eye disorder [Unknown]
  - Electrolyte imbalance [Unknown]
  - Hypokalaemia [Unknown]
  - Drug ineffective [Unknown]
  - Off label use [Unknown]
